FAERS Safety Report 5512716-4 (Version None)
Quarter: 2007Q4

REPORT INFORMATION
  Report Type: 
  Country: None (occurrence: None)
  Receive Date: 20071108
  Receipt Date: 20071023
  Transmission Date: 20080405
  Serious: Yes (Hospitalization)
  Sender: FDA-Public Use
  Company Number: 002#4#2007-00153

PATIENT
  Age: 72 Year
  Sex: Female
  Weight: 99.7913 kg

DRUGS (13)
  1. NEUPRO [Suspect]
     Indication: PARKINSON'S DISEASE
     Dosage: 6MG/24H, 1 IN 1 D, TRANSDERMAL
     Route: 062
     Dates: start: 20070807, end: 20070807
  2. ISTRADEFYLLINE (KW-6002) [Suspect]
     Indication: PARKINSON'S DISEASE
     Dates: start: 20050801
  3. CARBIDOPA [Concomitant]
  4. LEVODOPA [Concomitant]
  5. MIRAPEX [Concomitant]
  6. ENTACAPONE [Concomitant]
  7. ASPIRIN [Concomitant]
  8. BACLOFEN [Concomitant]
  9. FELODIPINE [Concomitant]
  10. DIOVAN [Concomitant]
  11. HYDROCHLOROTHIAZIDE [Concomitant]
  12. POTASSIUM CHLORIDE [Concomitant]
  13. LEVOTHYROXINE SODIUM [Concomitant]

REACTIONS (6)
  - CONDITION AGGRAVATED [None]
  - DRUG INTERACTION [None]
  - MALAISE [None]
  - MUSCLE SPASMS [None]
  - SPEECH DISORDER [None]
  - TREMOR [None]
